FAERS Safety Report 7988494-6 (Version None)
Quarter: 2011Q4

REPORT INFORMATION
  Report Type: 
  Country: None (occurrence: None)
  Receive Date: 20111216
  Receipt Date: 20111207
  Transmission Date: 20120403
  Serious: Yes (Hospitalization)
  Sender: FDA-Public Use
  Company Number: FR-ALLERGAN-1116026US

PATIENT
  Age: 69 Year
  Sex: Female

DRUGS (1)
  1. OZURDEX [Suspect]
     Indication: MACULAR OEDEMA
     Dosage: UNK
     Dates: start: 20111031, end: 20111031

REACTIONS (4)
  - VISUAL IMPAIRMENT [None]
  - OCULAR HYPERAEMIA [None]
  - CORNEAL OEDEMA [None]
  - DEVICE DISLOCATION [None]
